FAERS Safety Report 9345858 (Version 5)
Quarter: 2013Q4

REPORT INFORMATION
  Report Type: Spontaneous
  Country: US (occurrence: US)
  Receive Date: 20130613
  Receipt Date: 20131206
  Transmission Date: 20140711
  Serious: Yes (Hospitalization, Other)
  Sender: FDA-Public Use
  Company Number: US-PFIZER INC-2013173838

PATIENT
  Age: 71 Year
  Sex: Female
  Weight: 63.49 kg

DRUGS (8)
  1. CELEBREX [Suspect]
     Indication: OSTEOARTHRITIS
     Dosage: 200 MG, 1X/DAY
     Route: 048
  2. CELEBREX [Suspect]
     Indication: FIBROMYALGIA
     Dosage: 200 MG, 1X/DAY
     Route: 048
  3. CELEBREX [Suspect]
     Indication: OSTEOARTHRITIS
  4. SIMVASTATIN [Suspect]
     Indication: BLOOD CHOLESTEROL INCREASED
     Dosage: UNK
  5. CYMBALTA [Concomitant]
     Indication: DEPRESSION
     Dosage: 90 MG, 1X/DAY
  6. CYMBALTA [Concomitant]
     Indication: PAIN
  7. METFORMIN [Concomitant]
     Indication: DIABETES MELLITUS
     Dosage: 500 MG, 2X/DAY
  8. METFORMIN [Concomitant]
     Dosage: UNK

REACTIONS (4)
  - Infection [Unknown]
  - Arthritis bacterial [Unknown]
  - Escherichia infection [Unknown]
  - Drug ineffective [Unknown]
